FAERS Safety Report 9729673 (Version 2)
Quarter: 2013Q4

REPORT INFORMATION
  Report Type: Spontaneous
  Country: US (occurrence: US)
  Receive Date: 20131204
  Receipt Date: 20131204
  Transmission Date: 20140711
  Serious: No
  Sender: FDA-Public Use
  Company Number: US-GILEAD-2009-0020892

PATIENT
  Sex: Female
  Weight: 44 kg

DRUGS (19)
  1. LETAIRIS [Suspect]
     Indication: PULMONARY ARTERIAL HYPERTENSION
     Route: 048
     Dates: start: 20090314
  2. ALBUTEROL [Concomitant]
  3. SINGULAIR [Concomitant]
  4. SYMBICORT [Concomitant]
  5. NASONEX [Concomitant]
  6. ALLEGRA [Concomitant]
  7. MUCINEX [Concomitant]
  8. LASIX [Concomitant]
  9. CLONIDINE [Concomitant]
  10. VERAPAMIL [Concomitant]
  11. LOTENSIN [Concomitant]
  12. CARDURA [Concomitant]
  13. PREDNISONE [Concomitant]
  14. LIPITOR [Concomitant]
  15. PRILOSEC [Concomitant]
  16. BONIVA [Concomitant]
  17. TYLENOL ARTHRITIS [Concomitant]
  18. POTASSIUM CHLORIDE [Concomitant]
  19. VITAMIN D [Concomitant]

REACTIONS (2)
  - Fluid retention [Unknown]
  - Dyspnoea [Unknown]
